FAERS Safety Report 7591265-6 (Version None)
Quarter: 2011Q3

REPORT INFORMATION
  Report Type: 
  Country: None (occurrence: None)
  Receive Date: 20110706
  Receipt Date: 20110627
  Transmission Date: 20111222
  Serious: Yes (Hospitalization)
  Sender: FDA-Public Use
  Company Number: US-BIOGENIDEC-2011BI020766

PATIENT
  Age: 54 Year
  Sex: Female

DRUGS (7)
  1. TYSABRI [Suspect]
     Indication: MULTIPLE SCLEROSIS
     Route: 042
     Dates: start: 20080325
  2. CELEXA [Concomitant]
     Indication: DEPRESSION
  3. SYNTHROID [Concomitant]
     Indication: HYPOTHYROIDISM
  4. KEPPRA [Concomitant]
     Indication: CONVULSION
  5. TEGRETOL [Concomitant]
     Indication: CONVULSION
  6. ZOCOR [Concomitant]
     Indication: HYPERLIPIDAEMIA
  7. NEURONTIN [Concomitant]

REACTIONS (2)
  - VIRAL INFECTION [None]
  - HERPES ZOSTER OPHTHALMIC [None]
